FAERS Safety Report 9646234 (Version 1)
Quarter: 2013Q4

REPORT INFORMATION
  Report Type: Spontaneous
  Country: BR (occurrence: BR)
  Receive Date: 20131025
  Receipt Date: 20131025
  Transmission Date: 20140711
  Serious: Yes (Other)
  Sender: FDA-Public Use
  Company Number: BR-ELI_LILLY_AND_COMPANY-BR201310004845

PATIENT
  Age: 56 Year
  Sex: Male
  Weight: 77 kg

DRUGS (8)
  1. HUMULIN N [Suspect]
     Indication: DIABETES MELLITUS
     Dosage: 16 IU, QD
     Route: 065
     Dates: start: 2013
  2. HUMULIN N [Suspect]
     Dosage: 14 IU, QD
     Route: 065
  3. HUMULIN N [Suspect]
     Dosage: 12 IU, QD
     Route: 065
  4. HUMULIN N [Suspect]
     Dosage: 10 IU, QD
     Route: 065
  5. METFORMIN [Concomitant]
     Indication: DIABETES MELLITUS
     Dosage: 850 MG, TID
     Route: 065
  6. GLIBENCLAMIDE [Concomitant]
     Indication: DIABETES MELLITUS
     Dosage: UNK UNK, TID
     Route: 065
  7. ENALAPRIL [Concomitant]
     Indication: BLOOD PRESSURE
     Dosage: 5 MG, UNKNOWN
     Route: 065
  8. OMEPRAZOLE [Concomitant]
     Indication: DYSPEPSIA
     Dosage: UNK, PRN
     Route: 065

REACTIONS (7)
  - Thrombosis [Unknown]
  - Night sweats [Recovered/Resolved]
  - Panic reaction [Unknown]
  - Glycosylated haemoglobin increased [Unknown]
  - Muscle injury [Unknown]
  - Blood glucose abnormal [Unknown]
  - Hypoglycaemia [Not Recovered/Not Resolved]
